FAERS Safety Report 5219364-4 (Version None)
Quarter: 2006Q4

REPORT INFORMATION
  Report Type: 
  Country: None (occurrence: None)
  Receive Date: 20061201
  Receipt Date: 20060721
  Transmission Date: 20070319
  Serious: No
  Sender: FDA-Public Use
  Company Number: 2006PV018072

PATIENT
  Age: 58 Year
  Sex: Female
  Weight: 88.905 kg

DRUGS (5)
  1. BYETTA [Suspect]
     Indication: DIABETES MELLITUS NON-INSULIN-DEPENDENT
     Dosage: SEE IMAGE
     Route: 058
     Dates: start: 20060421, end: 20060521
  2. BYETTA [Suspect]
     Indication: DIABETES MELLITUS NON-INSULIN-DEPENDENT
     Dosage: SEE IMAGE
     Route: 058
     Dates: start: 20060522
  3. AMARYL [Concomitant]
  4. ACTOS [Concomitant]
  5. STARLIX [Concomitant]

REACTIONS (4)
  - BLOOD GLUCOSE DECREASED [None]
  - BLOOD GLUCOSE INCREASED [None]
  - FEELING ABNORMAL [None]
  - WEIGHT DECREASED [None]
